FAERS Safety Report 16019837 (Version 1)
Quarter: 2019Q1

REPORT INFORMATION
  Report Type: Spontaneous
  Country: US (occurrence: US)
  Receive Date: 20190228
  Receipt Date: 20190228
  Transmission Date: 20190418
  Serious: Yes (Other)
  Sender: FDA-Public Use
  Company Number: US-TEVA-2019-US-1017646

PATIENT
  Sex: Male

DRUGS (1)
  1. AMOXICILLIN AND CLAVULANATE POTASSIUM [Suspect]
     Active Substance: AMOXICILLIN\CLAVULANATE POTASSIUM
     Indication: DIVERTICULITIS
     Dosage: DOSE STRENGTH:  875 MG/125 MG
     Route: 065
     Dates: start: 20190116

REACTIONS (7)
  - Product use in unapproved indication [Unknown]
  - Monoplegia [Unknown]
  - Product prescribing error [Unknown]
  - Musculoskeletal pain [Not Recovered/Not Resolved]
  - Pollakiuria [Unknown]
  - Pain in extremity [Unknown]
  - Muscle spasms [Not Recovered/Not Resolved]

NARRATIVE: CASE EVENT DATE: 2019
